FAERS Safety Report 22157838 (Version 1)
Quarter: 2023Q1

REPORT INFORMATION
  Report Type: Spontaneous
  Country: US (occurrence: US)
  Receive Date: 20230330
  Receipt Date: 20230330
  Transmission Date: 20230418
  Serious: No
  Sender: FDA-Public Use
  Company Number: US-PFIZER INC-202100970249

PATIENT
  Age: 81 Year
  Sex: Female

DRUGS (2)
  1. IBRANCE [Suspect]
     Active Substance: PALBOCICLIB
     Indication: Breast cancer
     Dosage: 125 MG, CYCLIC (21 DAYS ON THEN 7 DAYS OFF)
     Dates: start: 20210625
  2. IBRANCE [Suspect]
     Active Substance: PALBOCICLIB
     Dosage: 75 MG

REACTIONS (5)
  - Mobility decreased [Unknown]
  - Product dose omission issue [Unknown]
  - Suspected counterfeit product [Unknown]
  - Suspected product tampering [Unknown]
  - Product physical issue [Unknown]

NARRATIVE: CASE EVENT DATE: 20210726
